FAERS Safety Report 4565995-4 (Version None)
Quarter: 2005Q1

REPORT INFORMATION
  Report Type: 
  Country: None (occurrence: None)
  Receive Date: 20050128
  Receipt Date: 20050104
  Transmission Date: 20050727
  Serious: Yes (Hospitalization)
  Sender: FDA-Public Use
  Company Number: GBWYE313705JAN05

PATIENT
  Age: 74 Year
  Sex: Female

DRUGS (7)
  1. MYAMBUTOL [Suspect]
     Indication: TUBERCULOSIS
     Dosage: 500 MG QD O47
  2. ISONIAZID [Suspect]
     Indication: TUBERCULOSIS
     Dosage: 300 MG QD
  3. LEVOTHYROXINE [Concomitant]
  4. BENDROFLUAZIDE (BENDROFLUTHIAZIDE) [Concomitant]
  5. BISOPROLOL FUMARATE [Concomitant]
  6. PHENYTOIN [Concomitant]
  7. ADCAL (CARBAZOCHROME) [Concomitant]

REACTIONS (1)
  - CLOSTRIDIUM COLITIS [None]
